FAERS Safety Report 5179241-4 (Version None)
Quarter: 2006Q4

REPORT INFORMATION
  Report Type: 
  Country: None (occurrence: None)
  Receive Date: 20061211
  Receipt Date: 20061127
  Transmission Date: 20070319
  Serious: Yes (Other)
  Sender: FDA-Public Use
  Company Number: 233132

PATIENT
  Sex: Male

DRUGS (3)
  1. AVASTIN [Suspect]
     Indication: COLORECTAL CANCER METASTATIC
     Dates: start: 20040301, end: 20061001
  2. LOVENOX [Concomitant]
  3. COUMADIN [Concomitant]

REACTIONS (4)
  - HAEMORRHAGE [None]
  - INTERNATIONAL NORMALISED RATIO DECREASED [None]
  - PROTEINURIA [None]
  - SUBCUTANEOUS ABSCESS [None]
